FAERS Safety Report 20029080 (Version 2)
Quarter: 2021Q4

REPORT INFORMATION
  Report Type: Spontaneous
  Country: US (occurrence: US)
  Receive Date: 20211103
  Receipt Date: 20211103
  Transmission Date: 20220303
  Serious: No
  Sender: FDA-Public Use
  Company Number: US-JNJFOC-20211042883

PATIENT
  Sex: Female

DRUGS (1)
  1. RHINOCORT ALLERGY [Suspect]
     Active Substance: BUDESONIDE
     Indication: Hypersensitivity
     Dosage: STARTED USING THIS A FEW WEEKS AGO, I DON^T REMEMBER THE DATE ANYMORE?1 PUMP IN THE MORNING, 1 PUMP
     Route: 065
     Dates: start: 2021

REACTIONS (3)
  - Incorrect dose administered [Unknown]
  - Inappropriate schedule of product administration [Unknown]
  - Product odour abnormal [Unknown]

NARRATIVE: CASE EVENT DATE: 20210101
